FAERS Safety Report 4610751-1 (Version None)
Quarter: 2005Q1

REPORT INFORMATION
  Report Type: 
  Country: None (occurrence: None)
  Receive Date: 20050301
  Receipt Date: 20041213
  Transmission Date: 20050727
  Serious: No
  Sender: FDA-Public Use
  Company Number: WAES 0412USA01607

PATIENT

DRUGS (2)
  1. ZETIA [Suspect]
     Dosage: PO
     Route: 048
  2. PRAVASTATIN SODIUM [Concomitant]

REACTIONS (1)
  - HERPES ZOSTER [None]
